FAERS Safety Report 9324025 (Version 3)
Quarter: 2014Q1

REPORT INFORMATION
  Report Type: Report from Study
  Country: US (occurrence: US)
  Receive Date: 20130603
  Receipt Date: 20140320
  Transmission Date: 20141002
  Serious: Yes (Other)
  Sender: FDA-Public Use
  Company Number: US-SANOFI-AVENTIS-2013SA055279

PATIENT
  Age: 39 Year
  Sex: Female

DRUGS (1)
  1. AUBAGIO [Suspect]
     Indication: MULTIPLE SCLEROSIS
     Dosage: PRODUCT START DATE: 3 MONTHS AGO
     Route: 048
     Dates: start: 20130228, end: 20140104

REACTIONS (4)
  - Uterine disorder [Unknown]
  - Gastrointestinal disorder [Unknown]
  - Central nervous system lesion [Unknown]
  - Alopecia [Unknown]
